FAERS Safety Report 18529386 (Version 60)
Quarter: 2023Q1

REPORT INFORMATION
  Report Type: Spontaneous
  Country: GB (occurrence: GB)
  Receive Date: 20201120
  Receipt Date: 20230330
  Transmission Date: 20230418
  Serious: Yes (Other)
  Sender: FDA-Public Use
  Company Number: None

PATIENT
  Age: 36 Year
  Sex: Male

DRUGS (49)
  1. METFORMIN HYDROCHLORIDE [Suspect]
     Active Substance: METFORMIN HYDROCHLORIDE
     Indication: Product used for unknown indication
     Dosage: UNK UNK, UNKNOWN FREQ.
     Route: 048
  2. METFORMIN HYDROCHLORIDE [Suspect]
     Active Substance: METFORMIN HYDROCHLORIDE
     Dosage: UNK UNK, UNKNOWN FREQ.
     Route: 065
  3. METFORMIN [Suspect]
     Active Substance: METFORMIN HYDROCHLORIDE
     Indication: Product used for unknown indication
     Dosage: UNK UNK, UNKNOWN FREQ.
     Route: 048
  4. METFORMIN [Suspect]
     Active Substance: METFORMIN HYDROCHLORIDE
     Dosage: UNK UNK, UNKNOWN FREQ.
     Route: 065
  5. TAMSULOSIN [Suspect]
     Active Substance: TAMSULOSIN
     Indication: Product used for unknown indication
     Dosage: UNK UNK, UNKNOWN FREQ
     Route: 048
  6. ATORVASTATIN CALCIUM [Suspect]
     Active Substance: ATORVASTATIN CALCIUM
     Indication: Product used for unknown indication
     Dosage: UNK UNK, UNKNOWN FREQ.
     Route: 048
  7. QUETIAPINE FUMARATE [Suspect]
     Active Substance: QUETIAPINE FUMARATE
     Indication: Product used for unknown indication
     Dosage: UNK UNK, UNKNOWN FREQ
     Route: 048
  8. QUETIAPINE FUMARATE [Suspect]
     Active Substance: QUETIAPINE FUMARATE
     Dosage: UNK UNK, UNKNOWN FREQ
     Route: 048
  9. QUETIAPINE FUMARATE [Suspect]
     Active Substance: QUETIAPINE FUMARATE
     Dosage: UNK UNK, UNKNOWN FREQ
     Route: 065
  10. QUETIAPINE FUMARATE [Suspect]
     Active Substance: QUETIAPINE FUMARATE
     Dosage: UNK UNK, UNKNOWN FREQ
     Route: 065
  11. AMLODIPINE BESYLATE [Suspect]
     Active Substance: AMLODIPINE BESYLATE
     Indication: Product used for unknown indication
     Dosage: UNK (UNK, UNKNOWN FREQ)
     Route: 048
  12. GLIMEPIRIDE [Suspect]
     Active Substance: GLIMEPIRIDE
     Indication: Product used for unknown indication
     Dosage: UNK UNK, UNKNOWN FREQ.
     Route: 048
  13. GLIMEPIRIDE [Suspect]
     Active Substance: GLIMEPIRIDE
     Dosage: UNK UNK, UNKNOWN FREQ.
     Route: 065
  14. GLIMEPIRIDE [Suspect]
     Active Substance: GLIMEPIRIDE
     Dosage: UNK UNK, UNKNOWN FREQ.
     Route: 048
  15. INDAPAMIDE [Suspect]
     Active Substance: INDAPAMIDE
     Indication: Product used for unknown indication
     Dosage: UNK UNK, UNKNOWN FREQ.
     Route: 048
  16. INDAPAMIDE [Suspect]
     Active Substance: INDAPAMIDE
     Dosage: UNK UNK, UNKNOWN FREQ.
     Route: 065
  17. INDAPAMIDE [Suspect]
     Active Substance: INDAPAMIDE
     Dosage: UNK UNK, UNKNOWN FREQ.
     Route: 048
  18. INDAPAMIDE [Suspect]
     Active Substance: INDAPAMIDE
     Route: 065
  19. INDAPAMIDE [Suspect]
     Active Substance: INDAPAMIDE
     Route: 048
  20. PIOGLITAZONE [Suspect]
     Active Substance: PIOGLITAZONE
     Indication: Product used for unknown indication
     Dosage: UNK UNK, UNKNOW FREQ
     Route: 048
  21. PIOGLITAZONE [Suspect]
     Active Substance: PIOGLITAZONE
     Route: 065
  22. PIOGLITAZONE [Suspect]
     Active Substance: PIOGLITAZONE
     Dosage: UNK UNK, UNKNOW FREQ
     Route: 065
  23. QUETIAPINE FUMARATE [Suspect]
     Active Substance: QUETIAPINE FUMARATE
     Indication: Product used for unknown indication
     Route: 048
  24. QUETIAPINE FUMARATE [Suspect]
     Active Substance: QUETIAPINE FUMARATE
     Route: 065
  25. QUETIAPINE FUMARATE [Suspect]
     Active Substance: QUETIAPINE FUMARATE
     Route: 048
  26. QUETIAPINE FUMARATE [Suspect]
     Active Substance: QUETIAPINE FUMARATE
     Route: 048
  27. AMLODIPINE [Suspect]
     Active Substance: AMLODIPINE BESYLATE
     Indication: Product used for unknown indication
     Dosage: UNK (UNK, UNKNOWN FREQ.)
     Route: 048
  28. AMLODIPINE [Suspect]
     Active Substance: AMLODIPINE BESYLATE
     Route: 065
  29. AMISULPRIDE [Suspect]
     Active Substance: AMISULPRIDE
     Indication: Product used for unknown indication
     Route: 048
  30. CLOZAPINE [Suspect]
     Active Substance: CLOZAPINE
     Indication: Schizophrenia
     Dosage: START DATE: 17/MAR/2022
     Route: 048
  31. CLOZAPINE [Suspect]
     Active Substance: CLOZAPINE
     Dosage: START DATE: 21/NOV/2018
     Route: 048
     Dates: start: 20181121, end: 20220317
  32. CLOZAPINE [Suspect]
     Active Substance: CLOZAPINE
     Dosage: START DATE: 21/NOV/2018, LAST DRUG ADMINISTRATION -17/APR/2022
     Route: 048
     Dates: end: 20220417
  33. CLOZAPINE [Suspect]
     Active Substance: CLOZAPINE
     Dosage: START DATE: 21/NOV/2018
     Route: 048
     Dates: end: 20220317
  34. CLOZAPINE [Suspect]
     Active Substance: CLOZAPINE
     Dosage: START DATE: 17/MAR/2022
     Route: 048
  35. CLOZAPINE [Suspect]
     Active Substance: CLOZAPINE
     Dosage: LAST DRUG ADMINISTRATION -17/APR/2022, START DATE: 21/NOV/2018
     Route: 048
     Dates: end: 20220417
  36. CLOZAPINE [Suspect]
     Active Substance: CLOZAPINE
     Dosage: START DATE: 17/MAR/2022
     Route: 048
     Dates: start: 20220317
  37. CLOZAPINE [Suspect]
     Active Substance: CLOZAPINE
     Dosage: UNK (START DATE21-NOV-2018 00:00)
     Route: 048
     Dates: start: 20181121, end: 20220417
  38. QUETIAPINE [Suspect]
     Active Substance: QUETIAPINE
     Indication: Product used for unknown indication
     Dosage: UNK, UNK,UNKNOWN FREQ. ROUTE: 065; FILM COATED TABLET , PROLONGED RELAEASE
     Route: 048
  39. QUETIAPINE [Suspect]
     Active Substance: QUETIAPINE
     Route: 048
  40. QUETIAPINE [Suspect]
     Active Substance: QUETIAPINE
     Route: 048
  41. QUETIAPINE [Suspect]
     Active Substance: QUETIAPINE
     Route: 065
  42. TAMSULOSIN HYDROCHLORIDE [Suspect]
     Active Substance: TAMSULOSIN HYDROCHLORIDE
     Indication: Product used for unknown indication
     Dosage: UNK UNK, UNKNOWN FREQ.
     Route: 048
  43. FINASTERIDE\TAMSULOSIN [Suspect]
     Active Substance: FINASTERIDE\TAMSULOSIN
     Indication: Product used for unknown indication
     Dosage: UNK UNK, UNKNOWN FREQ.
     Route: 065
  44. FINASTERIDE [Suspect]
     Active Substance: FINASTERIDE
     Indication: Product used for unknown indication
     Route: 065
  45. ATORVASTATIN [Suspect]
     Active Substance: ATORVASTATIN
     Indication: Product used for unknown indication
     Dosage: UNK UNK, UNKNOWN FREQ.
     Route: 048
  46. RAMIPRIL [Suspect]
     Active Substance: RAMIPRIL
     Indication: Product used for unknown indication
     Dosage: UNK UNK, UNKNOWN FREQ.
     Route: 048
  47. RAMIPRIL [Suspect]
     Active Substance: RAMIPRIL
     Route: 065
  48. TAMSULOSIN [Concomitant]
     Active Substance: TAMSULOSIN
     Indication: Product used for unknown indication
  49. ATORVASTATIN [Concomitant]
     Active Substance: ATORVASTATIN
     Indication: Product used for unknown indication

REACTIONS (6)
  - Hallucination, visual [Unknown]
  - Hyperthyroidism [Unknown]
  - Type 2 diabetes mellitus [Unknown]
  - Influenza [Unknown]
  - Neutropenia [Recovered/Resolved]
  - White blood cell count decreased [Recovered/Resolved]

NARRATIVE: CASE EVENT DATE: 20150101
